FAERS Safety Report 12064884 (Version 1)
Quarter: 2016Q1

REPORT INFORMATION
  Report Type: Spontaneous
  Country: AU (occurrence: AU)
  Receive Date: 20160210
  Receipt Date: 20160210
  Transmission Date: 20160526
  Serious: Yes (Hospitalization)
  Sender: FDA-Public Use
  Company Number: AU-AMGEN-AUSSP2016012014

PATIENT
  Age: 20 Year
  Sex: Female

DRUGS (6)
  1. RISPERIDONE. [Concomitant]
     Active Substance: RISPERIDONE
     Dosage: UNK
  2. LAMOTRIGINE. [Concomitant]
     Active Substance: LAMOTRIGINE
     Dosage: UNK
  3. EPILIM [Concomitant]
     Active Substance: VALPROATE SODIUM
     Dosage: UNK
  4. PROCHLORPERAZINE. [Concomitant]
     Active Substance: PROCHLORPERAZINE
     Dosage: UNK
  5. ENBREL [Suspect]
     Active Substance: ETANERCEPT
     Indication: TUMOUR NECROSIS FACTOR RECEPTOR-ASSOCIATED PERIODIC SYNDROME
     Dosage: 50 MG, WEEKLY
     Route: 058
     Dates: start: 2014
  6. METOCLOPRAMIDE. [Concomitant]
     Active Substance: METOCLOPRAMIDE
     Dosage: UNK

REACTIONS (6)
  - Nystagmus [Not Recovered/Not Resolved]
  - Eye pain [Not Recovered/Not Resolved]
  - Nausea [Not Recovered/Not Resolved]
  - Ataxia [Not Recovered/Not Resolved]
  - Headache [Not Recovered/Not Resolved]
  - Product use issue [Unknown]

NARRATIVE: CASE EVENT DATE: 2015
